FAERS Safety Report 6026180-2 (Version None)
Quarter: 2008Q4

REPORT INFORMATION
  Report Type: 
  Country: None (occurrence: None)
  Receive Date: 20081222
  Receipt Date: 20080904
  Transmission Date: 20090506
  Serious: No
  Sender: FDA-Public Use
  Company Number: ALL1-2008-02510

PATIENT
  Age: 10 Year
  Sex: Male
  Weight: 47.6 kg

DRUGS (3)
  1. VYVANSE [Suspect]
     Indication: ATTENTION DEFICIT/HYPERACTIVITY DISORDER
     Dosage: 30 MG, 1X/DAY: QD: ORAL
     Route: 048
     Dates: start: 20080903
  2. CLONIDINE [Concomitant]
  3. HYDROXYZINE [Concomitant]

REACTIONS (1)
  - AGGRESSION [None]
